FAERS Safety Report 18436981 (Version 2)
Quarter: 2020Q4

REPORT INFORMATION
  Report Type: Spontaneous
  Country: US (occurrence: US)
  Receive Date: 20201028
  Receipt Date: 20201104
  Transmission Date: 20210114
  Serious: Yes (Life-Threatening, Other)
  Sender: FDA-Public Use
  Company Number: US-PFIZER INC-2020417119

PATIENT
  Age: 36 Year
  Sex: Male

DRUGS (1)
  1. MEPERIDINE HCL [Suspect]
     Active Substance: MEPERIDINE HYDROCHLORIDE
     Indication: ANALGESIC THERAPY
     Dosage: UNK, DAILY
     Route: 042

REACTIONS (7)
  - Respiratory arrest [Recovering/Resolving]
  - Generalised tonic-clonic seizure [Recovering/Resolving]
  - Sinus tachycardia [Recovering/Resolving]
  - Hypotension [Unknown]
  - Hypertension [Recovering/Resolving]
  - Bradycardia [Unknown]
  - Toxicity to various agents [Recovering/Resolving]
